FAERS Safety Report 5744415-8 (Version None)
Quarter: 2008Q2

REPORT INFORMATION
  Report Type: 
  Country: None (occurrence: None)
  Receive Date: 20080520
  Receipt Date: 20080512
  Transmission Date: 20081010
  Serious: Yes (Other)
  Sender: FDA-Public Use
  Company Number: JP-BRISTOL-MYERS SQUIBB COMPANY-14196562

PATIENT
  Age: 56 Year
  Sex: Male
  Weight: 66 kg

DRUGS (4)
  1. ABILIFY [Suspect]
     Indication: SCHIZOPHRENIA
     Dosage: INITIALLY 6MG 21-23JAN08 INCREASED TO 12MG 24-27JAN08 INCREASED TO 24MG 28JAN-09APR08
     Route: 048
     Dates: start: 20080410, end: 20080417
  2. DEPAS [Concomitant]
     Dosage: FORM=TABLET
     Dates: start: 20040101, end: 20080417
  3. ZYPREXA [Concomitant]
     Dosage: FORM=TABLETER
     Dates: start: 20060101, end: 20080321
  4. SILECE [Concomitant]
     Dosage: FORM=TABLET
     Dates: start: 20080322, end: 20080417

REACTIONS (6)
  - DELUSION [None]
  - GASTROENTERITIS [None]
  - HALLUCINATION [None]
  - HALLUCINATION, AUDITORY [None]
  - INSOMNIA [None]
  - NEUROLEPTIC MALIGNANT SYNDROME [None]
